FAERS Safety Report 6053061-0 (Version None)
Quarter: 2009Q1

REPORT INFORMATION
  Report Type: 
  Country: None (occurrence: None)
  Receive Date: 20090127
  Receipt Date: 20081222
  Transmission Date: 20090719
  Serious: Yes (Death)
  Sender: FDA-Public Use
  Company Number: AU-PFIZER INC-2009150187

PATIENT

DRUGS (1)
  1. MARAVIROC [Suspect]
     Dosage: 150 MG, 2X/DAY
     Route: 048
     Dates: start: 20050901, end: 20081221

REACTIONS (1)
  - DEATH [None]
